FAERS Safety Report 5122506-2 (Version None)
Quarter: 2006Q4

REPORT INFORMATION
  Report Type: 
  Country: None (occurrence: None)
  Receive Date: 20061004
  Receipt Date: 20060920
  Transmission Date: 20070319
  Serious: Yes (Hospitalization)
  Sender: FDA-Public Use
  Company Number: 2006P1000331

PATIENT
  Age: 52 Year
  Sex: Male
  Weight: 82 kg

DRUGS (16)
  1. RETEPLASE [Suspect]
     Indication: ACUTE MYOCARDIAL INFARCTION
     Dosage: IV
     Route: 042
     Dates: start: 20060425, end: 20060425
  2. REOPRO [Suspect]
     Indication: ACUTE MYOCARDIAL INFARCTION
     Dosage: IV
     Route: 042
     Dates: start: 20050425
  3. TICLOPIDINE [Concomitant]
  4. RANITIDINE [Concomitant]
  5. ATORVASTATIN CALCIUM [Concomitant]
  6. ASPIRIN [Concomitant]
  7. METOPROLOL TARTRATE [Concomitant]
  8. POTASSIUM CHLORIDE [Concomitant]
  9. NITROGLYCERIN [Concomitant]
  10. ATROPINE SULFATE [Concomitant]
  11. CLOPIDOGREL [Concomitant]
  12. AMOXICILLIN W/CLAVULANIC ACID [Concomitant]
  13. METAMIZOLE [Concomitant]
  14. LACTOBACILLUS ACIDOPHILUS [Concomitant]
  15. ACENOCOUMAROL [Concomitant]
  16. METOPROLOL TARTRATE [Concomitant]

REACTIONS (4)
  - AORTIC CALCIFICATION [None]
  - CORONARY ARTERY STENOSIS [None]
  - EJECTION FRACTION DECREASED [None]
  - INTRACARDIAC THROMBUS [None]
